FAERS Safety Report 7360864-9 (Version None)
Quarter: 2011Q1

REPORT INFORMATION
  Report Type: 
  Country: None (occurrence: None)
  Receive Date: 20110318
  Receipt Date: 20110303
  Transmission Date: 20110831
  Serious: Yes (Death, Hospitalization)
  Sender: FDA-Public Use
  Company Number: US-KINGPHARMUSA00001-K201100277

PATIENT
  Sex: Female
  Weight: 39.456 kg

DRUGS (7)
  1. AVINZA [Suspect]
     Dosage: UNK
  2. ZOSYN [Suspect]
     Dosage: 500 MG, UNK
     Dates: start: 20100808
  3. LEVAQUIN [Suspect]
     Dosage: UNK
     Dates: start: 20100810
  4. OXYQUINOLINE SULFATE [Suspect]
  5. DILAUDID [Suspect]
     Dosage: UNK
  6. HYDROMORPHONE HCL [Suspect]
     Dosage: UNK
  7. LEVOFLOXACIN [Suspect]
     Dosage: UNK

REACTIONS (17)
  - INTERVERTEBRAL DISC DISORDER [None]
  - WEIGHT DECREASED [None]
  - LUNG DISORDER [None]
  - VAGINAL HAEMORRHAGE [None]
  - MOBILITY DECREASED [None]
  - VIRAL INFECTION [None]
  - DEATH [None]
  - PULMONARY EMBOLISM [None]
  - SWELLING [None]
  - DRUG HYPERSENSITIVITY [None]
  - MUSCULAR WEAKNESS [None]
  - DECREASED APPETITE [None]
  - PAIN [None]
  - URINARY TRACT INFECTION [None]
  - PNEUMONIA [None]
  - CONTUSION [None]
  - MOANING [None]
